FAERS Safety Report 5821093-0 (Version None)
Quarter: 2008Q3

REPORT INFORMATION
  Report Type: 
  Country: None (occurrence: None)
  Receive Date: 20080724
  Receipt Date: 20080716
  Transmission Date: 20090109
  Serious: Yes (Hospitalization)
  Sender: FDA-Public Use
  Company Number: NL-WATSON-2008-04300

PATIENT
  Age: 53 Year
  Sex: Male

DRUGS (2)
  1. BACLOFEN [Suspect]
     Indication: MUSCLE SPASMS
     Dosage: 5 MG, X 2, INCREASED TO 30MG/DAY
     Route: 048
  2. BACLOFEN [Suspect]
     Dosage: 10 MG/ML, 0.2ML/HR
     Route: 037

REACTIONS (1)
  - CONDUCTION DISORDER [None]
